FAERS Safety Report 5343349-0 (Version None)
Quarter: 2007Q2

REPORT INFORMATION
  Report Type: 
  Country: None (occurrence: None)
  Receive Date: 20070501
  Receipt Date: 20070126
  Transmission Date: 20071010
  Serious: No
  Sender: FDA-Public Use
  Company Number: 200710227US

PATIENT
  Age: 46 Year
  Sex: Male

DRUGS (1)
  1. KETEK [Suspect]
     Indication: INFECTION
     Dosage: QD PO
     Route: 048
     Dates: start: 20061020, end: 20061022

REACTIONS (1)
  - ABDOMINAL PAIN UPPER [None]
